FAERS Safety Report 21878606 (Version 3)
Quarter: 2023Q1

REPORT INFORMATION
  Report Type: Report from Study
  Country: US (occurrence: None)
  Receive Date: 20230118
  Receipt Date: 20230228
  Transmission Date: 20230417
  Serious: No
  Sender: FDA-Public Use
  Company Number: 2023A007009

PATIENT
  Sex: Female

DRUGS (1)
  1. SYMBICORT [Suspect]
     Active Substance: BUDESONIDE\FORMOTEROL FUMARATE DIHYDRATE
     Route: 055

REACTIONS (1)
  - No adverse event [Unknown]
